FAERS Safety Report 12373955 (Version 1)
Quarter: 2016Q2

REPORT INFORMATION
  Report Type: Spontaneous
  Country: CH (occurrence: CH)
  Receive Date: 20160517
  Receipt Date: 20160517
  Transmission Date: 20160815
  Serious: Yes (Death)
  Sender: FDA-Public Use
  Company Number: CH-CIPLA LTD.-2016DE04897

PATIENT

DRUGS (6)
  1. PACLITAXEL. [Suspect]
     Active Substance: PACLITAXEL
     Indication: NON-SMALL CELL LUNG CANCER METASTATIC
     Dosage: 75 MG/M2, OVER 60 MIN, ON DAYS 1, 8, AND 15 EVERY 4 WEEKS
     Route: 042
  2. CARBOPLATIN. [Suspect]
     Active Substance: CARBOPLATIN
     Indication: NON-SMALL CELL LUNG CANCER METASTATIC
     Dosage: AUC 3, OVER 30 MIN, ON DAYS 1, 8, AND 15 EVERY 4 WEEKS
     Route: 042
  3. RANITIDINE. [Concomitant]
     Active Substance: RANITIDINE
     Indication: PREMEDICATION
     Dosage: 50 MG, 1 HOUR BEFORE PACLITAXEL, ON DAYS 1, 8, AND 15 EVERY 4 WEEKS
     Route: 065
  4. DEXAMETHASONE. [Concomitant]
     Active Substance: DEXAMETHASONE
     Indication: PREMEDICATION
     Dosage: 8-12 MG, 1 HOUR BEFORE PACLITAXEL, ON DAYS 1, 8, AND 15 EVERY 4 WEEKS
     Route: 042
  5. CLEMASTINE [Concomitant]
     Active Substance: CLEMASTINE
     Indication: PREMEDICATION
     Dosage: 2MG, 1 HOUR BEFORE PACLITAXEL, ON DAYS 1, 8, AND 15 EVERY 4 WEEKS
     Route: 065
  6. GRANULOCYTE STIMULATING GROWTH FACTOR (G-CSF) [Concomitant]
     Indication: PROPHYLAXIS
     Dosage: UNK
     Route: 065

REACTIONS (1)
  - Pneumonia [Fatal]
